FAERS Safety Report 4446608-9 (Version None)
Quarter: 2004Q3

REPORT INFORMATION
  Report Type: 
  Country: None (occurrence: None)
  Receive Date: 20040910
  Receipt Date: 20040820
  Transmission Date: 20050211
  Serious: Yes (Hospitalization)
  Sender: FDA-Public Use
  Company Number: FR-MERCK-0408FRA00041

PATIENT
  Age: 72 Year
  Sex: Female
  Weight: 60 kg

DRUGS (4)
  1. ENALAPRIL MALEATE AND HYDROCHLOROTHIAZIDE [Suspect]
     Route: 048
  2. LAMIVUDINE [Suspect]
     Route: 048
  3. NOROXIN [Suspect]
     Indication: URINARY TRACT INFECTION
     Route: 048
     Dates: start: 20040712, end: 20040717
  4. PROPRANOLOL HYDROCHLORIDE [Suspect]
     Route: 048

REACTIONS (11)
  - ANOREXIA [None]
  - ASTERIXIS [None]
  - BLOOD BILIRUBIN INCREASED [None]
  - CONFUSIONAL STATE [None]
  - DEHYDRATION [None]
  - HYPERTONIA [None]
  - JAUNDICE [None]
  - NAUSEA [None]
  - NERVOUS SYSTEM DISORDER [None]
  - PYREXIA [None]
  - SOMNOLENCE [None]
